FAERS Safety Report 20108247 (Version 1)
Quarter: 2021Q4

REPORT INFORMATION
  Report Type: Spontaneous
  Country: US (occurrence: US)
  Receive Date: 20211124
  Receipt Date: 20211124
  Transmission Date: 20220303
  Serious: No
  Sender: FDA-Public Use
  Company Number: US-drreddys-SPO/USA/21/0143890

PATIENT
  Age: 87 Year
  Sex: Male
  Weight: 66.6 kg

DRUGS (2)
  1. TOBRAMYCIN [Suspect]
     Active Substance: TOBRAMYCIN
     Indication: Productive cough
     Dosage: 300MG/5ML ?TWICE A DAY FOR 28 DAYS ON/28 DAYS OFF
  2. IRON [Concomitant]
     Active Substance: IRON
     Indication: Product used for unknown indication

REACTIONS (1)
  - Underdose [Unknown]
